FAERS Safety Report 5987454-4 (Version None)
Quarter: 2008Q4

REPORT INFORMATION
  Report Type: 
  Country: None (occurrence: None)
  Receive Date: 20081209
  Receipt Date: 20081202
  Transmission Date: 20090506
  Serious: Yes (Hospitalization)
  Sender: FDA-Public Use
  Company Number: DE-AVENTIS-200813151DE

PATIENT
  Sex: Male

DRUGS (1)
  1. TAXOTERE [Suspect]
     Dosage: DOSE: NOT REPORTED
     Dates: start: 20080101, end: 20081101

REACTIONS (2)
  - ELECTROCARDIOGRAM QT PROLONGED [None]
  - PULMONARY OEDEMA [None]
